APPROVED DRUG PRODUCT: LAMIVUDINE AND ZIDOVUDINE
Active Ingredient: LAMIVUDINE; ZIDOVUDINE
Strength: 150MG;300MG
Dosage Form/Route: TABLET;ORAL
Application: A079081 | Product #001
Applicant: CHARTWELL RX SCIENCES LLC
Approved: May 25, 2011 | RLD: No | RS: No | Type: DISCN